FAERS Safety Report 11016903 (Version 2)
Quarter: 2015Q2

REPORT INFORMATION
  Report Type: Spontaneous
  Country: US (occurrence: US)
  Receive Date: 20150412
  Receipt Date: 20150525
  Transmission Date: 20150821
  Serious: No
  Sender: FDA-Public Use
  Company Number: US-JNJFOC-20130404476

PATIENT
  Age: 25 Year
  Sex: Female
  Weight: 61.24 kg

DRUGS (2)
  1. DONG QUAI [Suspect]
     Active Substance: ANGELICA SINENSIS ROOT
     Indication: PRODUCT USED FOR UNKNOWN INDICATION
     Route: 065
  2. ORTHO EVRA [Suspect]
     Active Substance: ETHINYL ESTRADIOL\NORELGESTROMIN
     Indication: CONTRACEPTION
     Route: 062
     Dates: start: 201303

REACTIONS (7)
  - Wrong technique in drug usage process [Unknown]
  - Withdrawal bleed [Not Recovered/Not Resolved]
  - Poor quality drug administered [Unknown]
  - Inappropriate schedule of drug administration [Unknown]
  - Application site pruritus [Recovered/Resolved]
  - Vaginal haemorrhage [Recovered/Resolved]
  - Product quality issue [Unknown]

NARRATIVE: CASE EVENT DATE: 201303
